FAERS Safety Report 17202903 (Version 1)
Quarter: 2019Q4

REPORT INFORMATION
  Report Type: Spontaneous
  Country: US (occurrence: US)
  Receive Date: 20191226
  Receipt Date: 20191226
  Transmission Date: 20200122
  Serious: No
  Sender: FDA-Public Use
  Company Number: US-PFIZER INC-2019550772

PATIENT
  Age: 48 Year

DRUGS (1)
  1. EFFEXOR XR [Suspect]
     Active Substance: VENLAFAXINE HYDROCHLORIDE
     Dosage: 300 MG, UNK

REACTIONS (3)
  - Feeling jittery [Unknown]
  - Anxiety [Unknown]
  - Drug ineffective [Unknown]
